FAERS Safety Report 8199752-7 (Version None)
Quarter: 2012Q1

REPORT INFORMATION
  Report Type: 
  Country: None (occurrence: None)
  Receive Date: 20120311
  Receipt Date: 20120302
  Transmission Date: 20120608
  Serious: Yes (Hospitalization)
  Sender: FDA-Public Use
  Company Number: PHHY2012FR019155

PATIENT
  Age: 60 Year
  Sex: Male

DRUGS (5)
  1. STALEVO 100 [Suspect]
     Indication: PARKINSON'S DISEASE
     Dosage: 1 DF (1000/750/187.5 MG) DAILY
     Route: 048
     Dates: start: 20100101
  2. DOXAZOSIN MESYLATE [Concomitant]
     Dosage: 8 MG, UNK
  3. ALDACTONE [Concomitant]
     Indication: HYPERTENSION
     Dosage: UNK UKN, UNK
  4. CLONAZEPAM [Concomitant]
     Dosage: UNK UKN, UNK
  5. AZILECT [Suspect]
     Indication: PARKINSON'S DISEASE
     Dosage: 1 MG, QD
     Route: 048
     Dates: start: 20111121, end: 20120122

REACTIONS (11)
  - DEHYDRATION [None]
  - C-REACTIVE PROTEIN INCREASED [None]
  - ARTHRALGIA [None]
  - CONJUNCTIVITIS [None]
  - GENERAL PHYSICAL HEALTH DETERIORATION [None]
  - OBSESSIVE-COMPULSIVE DISORDER [None]
  - DYSKINESIA [None]
  - VERTIGO [None]
  - SUBILEUS [None]
  - MENTAL DISORDER [None]
  - PYREXIA [None]
